FAERS Safety Report 9713812 (Version 1)
Quarter: 2013Q4

REPORT INFORMATION
  Report Type: Spontaneous
  Country: US (occurrence: None)
  Receive Date: 20131126
  Receipt Date: 20131126
  Transmission Date: 20140711
  Serious: Yes (Disabling)
  Sender: FDA-Public Use
  Company Number: None

PATIENT
  Age: 81 Year
  Sex: Female
  Weight: 54.43 kg

DRUGS (3)
  1. CRESTOR [Suspect]
     Indication: BLOOD CHOLESTEROL INCREASED
     Route: 048
     Dates: start: 2002, end: 2007
  2. CRESTOR [Suspect]
     Indication: TENDON PAIN
     Route: 048
     Dates: start: 2002, end: 2007
  3. CRESTOR [Suspect]
     Indication: MYALGIA
     Route: 048
     Dates: start: 2002, end: 2007

REACTIONS (9)
  - Tendon rupture [None]
  - Joint dislocation [None]
  - Tendon disorder [None]
  - Headache [None]
  - Dizziness [None]
  - Balance disorder [None]
  - Strabismus [None]
  - Poisoning [None]
  - Finger deformity [None]
